FAERS Safety Report 9110323 (Version 2)
Quarter: 2013Q4

REPORT INFORMATION
  Report Type: Spontaneous
  Country: US (occurrence: US)
  Receive Date: 20130222
  Receipt Date: 20131204
  Transmission Date: 20140711
  Serious: Yes (Other)
  Sender: FDA-Public Use
  Company Number: US-CELGENEUS-163-21880-13022064

PATIENT
  Age: 57 Year
  Sex: Male

DRUGS (5)
  1. REVLIMID [Suspect]
     Indication: PLASMA CELL MYELOMA
     Dosage: 10 MILLIGRAM
     Route: 048
     Dates: start: 201106
  2. REVLIMID [Suspect]
     Dosage: 10 MILLIGRAM
     Route: 048
     Dates: start: 20130215
  3. BACTRIM [Concomitant]
     Indication: ANTIFUNGAL PROPHYLAXIS
     Dosage: 860-160
     Route: 048
     Dates: start: 20110919
  4. MAGNESIUM [Concomitant]
     Indication: SUPPLEMENTATION THERAPY
     Dosage: 800 MILLIGRAM
     Route: 048
     Dates: start: 20120525
  5. NEXIUM [Concomitant]
     Indication: GASTROOESOPHAGEAL REFLUX DISEASE
     Dosage: 40 MILLIGRAM
     Route: 048
     Dates: start: 20110919

REACTIONS (1)
  - Cholelithiasis [Recovered/Resolved]
